FAERS Safety Report 5030335-3 (Version None)
Quarter: 2006Q2

REPORT INFORMATION
  Report Type: 
  Country: None (occurrence: None)
  Receive Date: 20060615
  Receipt Date: 20060606
  Transmission Date: 20061013
  Serious: Yes (Life-Threatening, Hospitalization, Other)
  Sender: FDA-Public Use
  Company Number: 2006049482

PATIENT
  Sex: Male
  Weight: 81.6475 kg

DRUGS (2)
  1. NEURONTIN [Suspect]
     Indication: BACK DISORDER
     Dosage: 600 MG (300 MG, 2 IN 1 D)
     Dates: start: 20040714
  2. NEURONTIN [Suspect]
     Indication: PAIN
     Dosage: 600 MG (300 MG, 2 IN 1 D)
     Dates: start: 20040714

REACTIONS (11)
  - ARTHRITIS [None]
  - BALANCE DISORDER [None]
  - BONE DISORDER [None]
  - DEHYDRATION [None]
  - EMOTIONAL DISORDER [None]
  - FALL [None]
  - FEAR [None]
  - HALLUCINATION [None]
  - INCORRECT DOSE ADMINISTERED [None]
  - PARAESTHESIA [None]
  - SUICIDAL IDEATION [None]
